FAERS Safety Report 6000650-5 (Version None)
Quarter: 2008Q4

REPORT INFORMATION
  Report Type: 
  Country: None (occurrence: None)
  Receive Date: 20081215
  Receipt Date: 20081204
  Transmission Date: 20090506
  Serious: Yes (Death, Other)
  Sender: FDA-Public Use
  Company Number: GB-WYE-G02725808

PATIENT
  Age: 56 Year
  Sex: Female

DRUGS (9)
  1. TYGACIL [Suspect]
     Indication: ENTEROCOCCAL INFECTION
     Dosage: ^STANDARD DOSE^
  2. TYGACIL [Suspect]
     Indication: ENDOCARDITIS
  3. TYGACIL [Suspect]
     Indication: BACTERAEMIA
  4. TYGACIL [Suspect]
     Indication: INTERVERTEBRAL DISCITIS
  5. AMOXICILLIN [Suspect]
     Dosage: ^HIGH DOSE^
  6. LINEZOLID [Concomitant]
     Dosage: UNKNOWN
  7. VANCOMYCIN [Suspect]
     Indication: ENTEROCOCCAL INFECTION
     Dosage: UNKNOWN
  8. VANCOMYCIN [Suspect]
     Indication: ENDOCARDITIS
  9. VANCOMYCIN [Suspect]
     Indication: BACTERAEMIA

REACTIONS (5)
  - BACTERAEMIA [None]
  - CARDIAC FAILURE CONGESTIVE [None]
  - CLOSTRIDIUM DIFFICILE COLITIS [None]
  - DRUG INEFFECTIVE [None]
  - RENAL FAILURE ACUTE [None]
